FAERS Safety Report 10915362 (Version 4)
Quarter: 2015Q2

REPORT INFORMATION
  Report Type: Spontaneous
  Country: US (occurrence: US)
  Receive Date: 20150316
  Receipt Date: 20150402
  Transmission Date: 20150821
  Serious: Yes (Other)
  Sender: FDA-Public Use
  Company Number: US-AMGEN-USASP2015022964

PATIENT

DRUGS (7)
  1. METHOTREXATE [Suspect]
     Active Substance: METHOTREXATE
     Indication: PRODUCT USED FOR UNKNOWN INDICATION
     Dosage: UNK
     Route: 065
  2. MAGNESIUM [Concomitant]
     Active Substance: MAGNESIUM
     Dosage: UNK
  3. ENBREL [Suspect]
     Active Substance: ETANERCEPT
     Indication: RHEUMATOID ARTHRITIS
     Dosage: UNK
     Route: 065
  4. POTASSIUM [Concomitant]
     Active Substance: POTASSIUM
     Dosage: UNK
  5. CIMZIA [Concomitant]
     Active Substance: CERTOLIZUMAB PEGOL
     Dosage: UNK
     Route: 065
  6. VITAMIN B [Concomitant]
     Active Substance: VITAMIN B
     Dosage: UNK
  7. CALCIUM D                          /01272001/ [Concomitant]

REACTIONS (15)
  - Drug effect incomplete [Unknown]
  - Sinusitis [Unknown]
  - Fatigue [Unknown]
  - Therapeutic response decreased [Unknown]
  - Malaise [Unknown]
  - Depressed level of consciousness [Unknown]
  - Dyspnoea [Unknown]
  - Respiratory tract infection [Unknown]
  - Sinus headache [Unknown]
  - Adverse drug reaction [Unknown]
  - Injection site pain [Unknown]
  - Upper respiratory tract infection [Unknown]
  - Rheumatoid arthritis [Unknown]
  - Condition aggravated [Unknown]
  - Pain [Unknown]
